FAERS Safety Report 5861259-7 (Version None)
Quarter: 2008Q3

REPORT INFORMATION
  Report Type: 
  Country: None (occurrence: None)
  Receive Date: 20080827
  Receipt Date: 20080328
  Transmission Date: 20090109
  Serious: No
  Sender: FDA-Public Use
  Company Number: US-ABBOTT-08P-163-0444847-00

PATIENT
  Age: 43 Year
  Sex: Female

DRUGS (2)
  1. NIASPAN [Suspect]
     Indication: BLOOD CHOLESTEROL INCREASED
     Route: 048
     Dates: start: 20080101, end: 20080225
  2. NIASPAN [Suspect]
     Route: 048
     Dates: start: 20060601, end: 20080101

REACTIONS (1)
  - BLOOD CHOLESTEROL INCREASED [None]
